FAERS Safety Report 17329814 (Version 3)
Quarter: 2020Q1

REPORT INFORMATION
  Report Type: Report from Study
  Country: CN (occurrence: CN)
  Receive Date: 20200127
  Receipt Date: 20200310
  Transmission Date: 20200409
  Serious: Yes (Hospitalization)
  Sender: FDA-Public Use
  Company Number: NVSC2020CN014420

PATIENT
  Age: 56 Year
  Sex: Male
  Weight: 79.4 kg

DRUGS (11)
  1. DIGOXIN. [Concomitant]
     Active Substance: DIGOXIN
     Indication: CARDIOTOXICITY
     Dosage: 0.125 MG, QD
     Route: 065
     Dates: start: 20191225
  2. ATORVASTATIN [Concomitant]
     Active Substance: ATORVASTATIN
     Indication: DYSLIPIDAEMIA
     Dosage: 20 MG, QD
     Route: 065
     Dates: start: 20191028
  3. RABEPRAZOLE SODIUM. [Concomitant]
     Active Substance: RABEPRAZOLE SODIUM
     Indication: PROPHYLAXIS
     Dosage: 20 MG, QD
     Route: 065
     Dates: start: 20191218
  4. FUROSEMIDE. [Concomitant]
     Active Substance: FUROSEMIDE
     Indication: CARDIAC DISORDER
     Dosage: 20 MG, BID
     Route: 065
     Dates: start: 20191028
  5. DIGOXIN. [Concomitant]
     Active Substance: DIGOXIN
     Indication: CARDIAC DYSFUNCTION
  6. ENTRESTO [Suspect]
     Active Substance: SACUBITRIL\VALSARTAN
     Indication: CARDIAC FAILURE CHRONIC
     Dosage: 50 MG, BID
     Route: 048
     Dates: start: 20191028, end: 20191215
  7. BISOPROLOL [Concomitant]
     Active Substance: BISOPROLOL
     Indication: VENTRICULAR TACHYCARDIA
     Dosage: 5 MG, QD
     Route: 065
     Dates: start: 20191216
  8. RIVAROXABAN [Concomitant]
     Active Substance: RIVAROXABAN
     Indication: ATRIAL FIBRILLATION
     Dosage: 10 MG, QD
     Route: 065
     Dates: start: 20191224
  9. BISOPROLOL [Concomitant]
     Active Substance: BISOPROLOL
     Indication: VENTRICULAR REMODELLING
  10. PERINDOPRIL TERT-BUTYLAMINE [Concomitant]
     Active Substance: PERINDOPRIL ERBUMINE
     Indication: VENTRICULAR REMODELLING
     Dosage: 4 MG, QD
     Route: 065
     Dates: start: 20191216
  11. SPIRONOLACTONE. [Concomitant]
     Active Substance: SPIRONOLACTONE
     Indication: CARDIOVASCULAR DISORDER
     Dosage: 20 MG, BID
     Route: 065
     Dates: start: 20191028

REACTIONS (15)
  - Chest discomfort [Recovered/Resolved]
  - Mental disorder [Recovered/Resolved]
  - Cardiac failure acute [Recovering/Resolving]
  - Oxygen saturation decreased [Recovering/Resolving]
  - Hyperuricaemia [Recovered/Resolved]
  - Ill-defined disorder [Recovering/Resolving]
  - Cardiac valve disease [Not Recovered/Not Resolved]
  - Hyperhidrosis [Recovered/Resolved]
  - Productive cough [Recovered/Resolved]
  - Coronary artery disease [Not Recovered/Not Resolved]
  - Cough [Recovering/Resolving]
  - Tachypnoea [Recovered/Resolved]
  - Orthopnoea [Recovered/Resolved]
  - Type 2 diabetes mellitus [Recovering/Resolving]
  - Nausea [Recovered/Resolved]

NARRATIVE: CASE EVENT DATE: 20191028
